FAERS Safety Report 4327517-2 (Version None)
Quarter: 2004Q1

REPORT INFORMATION
  Report Type: 
  Country: None (occurrence: None)
  Receive Date: 20040325
  Receipt Date: 20031028
  Transmission Date: 20041129
  Serious: Yes (Other)
  Sender: FDA-Public Use
  Company Number: 805#1#2003-00042

PATIENT
  Age: 69 Year
  Sex: Female

DRUGS (5)
  1. ALPROSTADIL [Suspect]
     Indication: FACIAL NERVE DISORDER
     Dosage: 1.80 MCG (40 MCG 2 IN 1 DAY (S));INTRAVENOUS DRIP
     Route: 041
     Dates: start: 20030910, end: 20030912
  2. PREDNISOOONE-SODIUM-SUCCINATE (PREDNISOLONE) [Concomitant]
  3. VALACYCLOVIR HCL [Concomitant]
  4. DEXTRAN-40-LACTATED-RINGERS (DEXTRAN 40) [Concomitant]
  5. GLYCERIN (FRUCTUOSE, GLYCEROL) [Concomitant]

REACTIONS (9)
  - BLOOD CHLORIDE INCREASED [None]
  - BLOOD LACTATE DEHYDROGENASE INCREASED [None]
  - BLOOD SODIUM INCREASED [None]
  - CONVULSION [None]
  - HEADACHE [None]
  - LOSS OF CONSCIOUSNESS [None]
  - PAIN IN EXTREMITY [None]
  - RED BLOOD CELL COUNT DECREASED [None]
  - WHITE BLOOD CELL COUNT DECREASED [None]
